FAERS Safety Report 10812093 (Version 1)
Quarter: 2015Q1

REPORT INFORMATION
  Report Type: Spontaneous
  Country: US (occurrence: US)
  Receive Date: 20150218
  Receipt Date: 20150218
  Transmission Date: 20150721
  Serious: Yes (Hospitalization)
  Sender: FDA-Public Use
  Company Number: US-009507513-1502USA006179

PATIENT
  Age: 27 Year
  Sex: Female
  Weight: 95.24 kg

DRUGS (4)
  1. OXYCODONE [Concomitant]
     Active Substance: OXYCODONE
     Dosage: UNKNOWN
  2. NEXPLANON [Suspect]
     Active Substance: ETONOGESTREL
     Indication: CONTRACEPTION
     Dosage: 1 ROD FOR 3 YEARS
     Route: 059
     Dates: start: 20131014, end: 20150114
  3. ROBAXIN [Concomitant]
     Active Substance: METHOCARBAMOL
     Dosage: UNKNOWN
  4. GABAPENTIN. [Concomitant]
     Active Substance: GABAPENTIN
     Dosage: UNKNOWN

REACTIONS (4)
  - Headache [Recovering/Resolving]
  - Menorrhagia [Recovering/Resolving]
  - Pain in extremity [Recovering/Resolving]
  - Abdominal pain [Recovering/Resolving]

NARRATIVE: CASE EVENT DATE: 201401
